FAERS Safety Report 25899981 (Version 1)
Quarter: 2025Q4

REPORT INFORMATION
  Report Type: Spontaneous
  Country: JP (occurrence: None)
  Receive Date: 20251009
  Receipt Date: 20251009
  Transmission Date: 20260117
  Serious: Yes (Disabling)
  Sender: ORGANON
  Company Number: JP-ORGANON-O2510JPN000706

PATIENT
  Age: 72 Year
  Sex: Male

DRUGS (4)
  1. ALENDRONATE SODIUM [Suspect]
     Active Substance: ALENDRONATE SODIUM
     Indication: Osteoporosis
     Dosage: UNK UNK, QW
     Dates: start: 2024, end: 202508
  2. AZOPT [Concomitant]
     Active Substance: BRINZOLAMIDE
     Dosage: BOTH EYES
  3. RIPASUDIL HYDROCHLORIDE [Concomitant]
     Active Substance: RIPASUDIL HYDROCHLORIDE
     Dosage: BOTH EYES
  4. EPINASTINE HYDROCHLORIDE [Concomitant]
     Active Substance: EPINASTINE HYDROCHLORIDE
     Dosage: BOTH EYES

REACTIONS (1)
  - Vision blurred [Recovered/Resolved]

NARRATIVE: CASE EVENT DATE: 20240101
